FAERS Safety Report 6681485-7 (Version None)
Quarter: 2010Q2

REPORT INFORMATION
  Report Type: 
  Country: None (occurrence: None)
  Receive Date: 20100414
  Receipt Date: 20100409
  Transmission Date: 20101027
  Serious: Yes (Disabling, Other)
  Sender: FDA-Public Use
  Company Number: US-MERCK-1003USA04025

PATIENT
  Age: 11 Year
  Sex: Male
  Weight: 45 kg

DRUGS (8)
  1. SINGULAIR [Suspect]
     Indication: ASTHMA
     Route: 048
     Dates: start: 20081101, end: 20080101
  2. SINGULAIR [Suspect]
     Route: 048
     Dates: start: 20090201
  3. SINGULAIR [Suspect]
     Indication: RHINITIS ALLERGIC
     Route: 048
     Dates: start: 20081101, end: 20080101
  4. SINGULAIR [Suspect]
     Route: 048
     Dates: start: 20090201
  5. PREDNISOLON [Concomitant]
     Route: 065
  6. TAMIFLU [Concomitant]
     Route: 065
  7. AMOXICILLIN [Concomitant]
     Route: 065
  8. ALBUTEROL [Concomitant]
     Route: 065

REACTIONS (8)
  - ABNORMAL DREAMS [None]
  - AGITATION [None]
  - DEPRESSION [None]
  - DRUG DEPENDENCE [None]
  - MOOD ALTERED [None]
  - PSYCHOMOTOR HYPERACTIVITY [None]
  - SLEEP DISORDER [None]
  - SUICIDAL IDEATION [None]
